FAERS Safety Report 7433137-3 (Version None)
Quarter: 2011Q2

REPORT INFORMATION
  Report Type: 
  Country: None (occurrence: None)
  Receive Date: 20110422
  Receipt Date: 20110413
  Transmission Date: 20111010
  Serious: Yes (Other)
  Sender: FDA-Public Use
  Company Number: BE-ASTRAZENECA-2011SE06685

PATIENT
  Age: 18905 Day
  Sex: Male

DRUGS (7)
  1. XANAX [Concomitant]
     Dosage: 0.5
  2. AMLODIPINE [Concomitant]
     Dosage: 5 MG IN THE MORNING AND 5 MG AT AFTERNOON
  3. FUROSEMIDE [Concomitant]
  4. CRESTOR [Suspect]
     Route: 048
     Dates: start: 20100101, end: 20100625
  5. RAMIPRIL [Concomitant]
  6. EFFEXOR [Concomitant]
  7. ASAFLOW [Concomitant]

REACTIONS (1)
  - LIGAMENT RUPTURE [None]
